FAERS Safety Report 5747736-8 (Version None)
Quarter: 2008Q2

REPORT INFORMATION
  Report Type: 
  Country: None (occurrence: None)
  Receive Date: 20080523
  Receipt Date: 20070417
  Transmission Date: 20081010
  Serious: No
  Sender: FDA-Public Use
  Company Number: US-BAYER-200711240BWH

PATIENT
  Age: 67 Year
  Sex: Female

DRUGS (7)
  1. PRECOSE [Suspect]
     Indication: TYPE 2 DIABETES MELLITUS
     Dates: start: 20070320
  2. PRECOSE [Suspect]
     Dates: start: 20070320
  3. PRECOSE [Suspect]
     Dates: end: 20070319
  4. BYETTA [Suspect]
     Indication: TYPE 2 DIABETES MELLITUS
     Dosage: TOTAL DAILY DOSE: 5 ?L  UNIT DOSE: 0.25 MG/ML
     Route: 058
     Dates: start: 20070108, end: 20070201
  5. BYETTA [Suspect]
     Route: 058
     Dates: start: 20070227
  6. GLIMEPIRIDE [Concomitant]
  7. GLIMEPIRIDE [Concomitant]

REACTIONS (2)
  - BLOOD GLUCOSE DECREASED [None]
  - BLOOD GLUCOSE INCREASED [None]
